FAERS Safety Report 17573318 (Version 2)
Quarter: 2020Q2

REPORT INFORMATION
  Report Type: Spontaneous
  Country: US (occurrence: US)
  Receive Date: 20200323
  Receipt Date: 20200602
  Transmission Date: 20200713
  Serious: Yes (Hospitalization)
  Sender: FDA-Public Use
  Company Number: NVSC2020US082134

PATIENT
  Age: 62 Year
  Sex: Female

DRUGS (1)
  1. ETANERCEPT [Suspect]
     Active Substance: ETANERCEPT
     Indication: RHEUMATOID ARTHRITIS
     Dosage: UNK
     Route: 065

REACTIONS (9)
  - Abdominal pain [Recovering/Resolving]
  - Amylase increased [Recovering/Resolving]
  - Tachycardia [Recovering/Resolving]
  - Lipase increased [Recovering/Resolving]
  - Pancreatitis acute [Recovering/Resolving]
  - Nausea [Recovering/Resolving]
  - Vomiting [Recovering/Resolving]
  - Dehydration [Recovering/Resolving]
  - Abdominal tenderness [Recovering/Resolving]
